FAERS Safety Report 8934464 (Version 1)
Quarter: 2012Q4

REPORT INFORMATION
  Report Type: Report from Study
  Country: JP (occurrence: JP)
  Receive Date: 20121129
  Receipt Date: 20121129
  Transmission Date: 20130627
  Serious: Yes (Other)
  Sender: FDA-Public Use
  Company Number: JP-VERTEX PHARMACEUTICAL INC.-AE-2012-006172

PATIENT
  Age: 64 Year
  Sex: Male

DRUGS (13)
  1. VX-950 (TELAPREVIR) [Suspect]
     Indication: CHRONIC HEPATITIS C
     Dosage: 1500 mg, qd
     Route: 048
     Dates: start: 20120220, end: 20120514
  2. REBETOL [Suspect]
     Indication: CHRONIC HEPATITIS C
     Dosage: 800 mg, qd
     Route: 048
     Dates: start: 20120220, end: 20120305
  3. REBETOL [Suspect]
     Dosage: 600 mg, qd
     Route: 048
     Dates: start: 20120306, end: 20120311
  4. REBETOL [Suspect]
     Dosage: 200 UNK, UNK
     Route: 048
     Dates: start: 20120312, end: 20120408
  5. REBETOL [Suspect]
     Dosage: 400 mg, qd
     Route: 048
     Dates: start: 20120409, end: 20120610
  6. PEGINTERFERON ALFA-2B [Suspect]
     Indication: CHRONIC HEPATITIS C
     Dosage: 1.5 ?g/kg, qw
     Route: 058
     Dates: start: 20120220, end: 20120416
  7. PEGINTERFERON ALFA-2B [Suspect]
     Dosage: 0.77 ?g/kg, qw
     Route: 058
     Dates: start: 20120423, end: 20120501
  8. PEGINTERFERON ALFA-2B [Suspect]
     Dosage: 0.92 ?g/kg, qw
     Route: 058
     Dates: start: 20120507, end: 20120604
  9. VOGLIBOSE [Concomitant]
     Dosage: 0.6 mg, qd
     Route: 048
  10. GLUFAST [Concomitant]
     Dosage: 15 mg, qd
     Route: 048
  11. LOXONIN [Concomitant]
     Dosage: 60 mg, prn
     Route: 048
     Dates: start: 20120220, end: 20120709
  12. GASTER [Concomitant]
     Dosage: 4 mg, prn
     Route: 048
     Dates: start: 20120220, end: 20120709
  13. URSO                               /00465701/ [Concomitant]
     Dosage: 600 mg, qd
     Route: 048
     Dates: start: 20120709

REACTIONS (1)
  - Erythema multiforme [Recovered/Resolved]
